FAERS Safety Report 24440738 (Version 2)
Quarter: 2024Q4

REPORT INFORMATION
  Report Type: Report from Study
  Country: US (occurrence: US)
  Receive Date: 20241016
  Receipt Date: 20241017
  Transmission Date: 20250115
  Serious: No
  Sender: ROCHE
  Company Number: US-ROCHE-2993155

PATIENT
  Age: 64 Year
  Sex: Male

DRUGS (3)
  1. HEMLIBRA [Suspect]
     Active Substance: EMICIZUMAB-KXWH
     Indication: Factor VIII deficiency
     Dosage: INJECT 264.9MG ( 1.4ML FROM 2 VIALS OF 105MG/0.7 AND 0.37ML FROM 1 VIAL OF 60MG/0.4ML)
     Route: 058
  2. HEMLIBRA [Suspect]
     Active Substance: EMICIZUMAB-KXWH
     Indication: Acquired haemophilia
     Dosage: INJECT 264.9MG (1.4 ML FROM 2 VIALS 105MG/0.7ML AND 0.37 ML FROM 1 VIAL 60MG/0.4ML)
     Route: 058
  3. HEMLIBRA [Suspect]
     Active Substance: EMICIZUMAB-KXWH
     Dosage: INJECT 137.1MG (0.91ML) SUBCUTANEOUSLY EVERY 14 DAY(S)
     Route: 058

REACTIONS (3)
  - Incorrect dose administered [Unknown]
  - Wrong technique in product usage process [Unknown]
  - Nasopharyngitis [Unknown]
